FAERS Safety Report 6521781-7 (Version None)
Quarter: 2009Q4

REPORT INFORMATION
  Report Type: 
  Country: None (occurrence: None)
  Receive Date: 20091214
  Receipt Date: 20090805
  Transmission Date: 20100525
  Serious: Yes (Other)
  Sender: FDA-Public Use
  Company Number: 649116

PATIENT
  Age: 51 Year
  Sex: Female

DRUGS (2)
  1. PEGASYS [Suspect]
     Indication: HEPATITIS C
     Dosage: 180 UG 1 PER 1 WEEK
     Dates: start: 20090206, end: 20090716
  2. RIBAVIRIN [Suspect]
     Indication: HEPATITIS C
     Dosage: 800 MG DAILY
     Dates: start: 20090206, end: 20090716

REACTIONS (4)
  - DIZZINESS [None]
  - INCREASED TENDENCY TO BRUISE [None]
  - PLATELET COUNT DECREASED [None]
  - RESTLESS LEGS SYNDROME [None]
